FAERS Safety Report 24634857 (Version 2)
Quarter: 2025Q1

REPORT INFORMATION
  Report Type: Report from Study
  Country: CA (occurrence: CA)
  Receive Date: 20241119
  Receipt Date: 20250226
  Transmission Date: 20250409
  Serious: Yes (Hospitalization, Other)
  Sender: TAKEDA
  Company Number: CA-TAKEDA-2024TUS112869

PATIENT
  Sex: Female

DRUGS (2)
  1. VEDOLIZUMAB [Suspect]
     Active Substance: VEDOLIZUMAB
     Indication: Crohn^s disease
  2. ENTOCORT [Suspect]
     Active Substance: BUDESONIDE
     Indication: Product used for unknown indication
     Dosage: 3 MILLIGRAM, TID

REACTIONS (7)
  - Kidney infection [Unknown]
  - Malaise [Unknown]
  - Abdominal mass [Unknown]
  - Anal fistula [Unknown]
  - Diarrhoea [Unknown]
  - Feeling abnormal [Unknown]
  - Arthralgia [Unknown]
